FAERS Safety Report 10378471 (Version 1)
Quarter: 2014Q3

REPORT INFORMATION
  Report Type: Spontaneous
  Country: IN (occurrence: IN)
  Receive Date: 20140812
  Receipt Date: 20140812
  Transmission Date: 20150326
  Serious: Yes (Life-Threatening, Hospitalization)
  Sender: FDA-Public Use
  Company Number: IN-MYLAN-2014M1001200

PATIENT

DRUGS (2)
  1. TRANEXAMIC ACID. [Suspect]
     Active Substance: TRANEXAMIC ACID
     Route: 037
  2. FENTANYL. [Concomitant]
     Active Substance: FENTANYL
     Indication: SPINAL ANAESTHESIA
     Dosage: 25 MICROG
     Route: 037

REACTIONS (7)
  - Wrong drug administered [Recovered/Resolved]
  - Accidental exposure to product [None]
  - Generalised tonic-clonic seizure [None]
  - Anaesthetic complication [None]
  - Blood pressure increased [None]
  - Status epilepticus [Recovered/Resolved]
  - Heart rate increased [None]
